FAERS Safety Report 19925092 (Version 2)
Quarter: 2021Q4

REPORT INFORMATION
  Report Type: Spontaneous
  Country: US (occurrence: US)
  Receive Date: 20211006
  Receipt Date: 20211220
  Transmission Date: 20220303
  Serious: No
  Sender: FDA-Public Use
  Company Number: US-BLUEPRINT MEDICINES CORPORATION-SP-US-2021-001693

PATIENT
  Sex: Male

DRUGS (1)
  1. AYVAKIT [Suspect]
     Active Substance: AVAPRITINIB
     Indication: Gastrointestinal stromal tumour
     Route: 048
     Dates: start: 20210831

REACTIONS (6)
  - Dehydration [Unknown]
  - Laboratory test abnormal [Unknown]
  - Product taste abnormal [Recovered/Resolved]
  - Nausea [Unknown]
  - Dyspepsia [Unknown]
  - Growth disorder [Unknown]
